FAERS Safety Report 4954548-1 (Version None)
Quarter: 2006Q1

REPORT INFORMATION
  Report Type: 
  Country: None (occurrence: None)
  Receive Date: 20060327
  Receipt Date: 20060317
  Transmission Date: 20060701
  Serious: Yes (Hospitalization)
  Sender: FDA-Public Use
  Company Number: 2006UW04667

PATIENT
  Age: 80 Year
  Sex: Male

DRUGS (4)
  1. CRESTOR [Suspect]
     Route: 048
     Dates: end: 20060308
  2. TOPROL-XL [Concomitant]
     Route: 048
     Dates: end: 20060308
  3. TRICOR [Concomitant]
     Dates: end: 20060308
  4. ACTOS [Concomitant]
     Dates: end: 20060308

REACTIONS (6)
  - BLOOD CREATINE PHOSPHOKINASE INCREASED [None]
  - FALL [None]
  - INJURY [None]
  - PAIN IN EXTREMITY [None]
  - RENAL FAILURE [None]
  - RHABDOMYOLYSIS [None]
